FAERS Safety Report 7648437-1 (Version None)
Quarter: 2011Q3

REPORT INFORMATION
  Report Type: 
  Country: None (occurrence: None)
  Receive Date: 20110801
  Receipt Date: 20110721
  Transmission Date: 20111222
  Serious: Yes (Other)
  Sender: FDA-Public Use
  Company Number: US-ASTRAZENECA-2011SE43765

PATIENT
  Age: 64 Year
  Sex: Female
  Weight: 93.9 kg

DRUGS (8)
  1. TENORMIN [Suspect]
     Indication: BLOOD PRESSURE ABNORMAL
     Route: 048
  2. NORVASC [Interacting]
     Indication: BLOOD PRESSURE ABNORMAL
     Route: 048
  3. KLOR-CON [Interacting]
     Route: 065
     Dates: start: 20110422
  4. LIPITOR [Interacting]
     Indication: BLOOD CHOLESTEROL INCREASED
     Route: 048
     Dates: start: 20110301, end: 20110527
  5. BENICAR [Interacting]
     Route: 048
  6. KLOR-CON [Interacting]
     Indication: MINERAL SUPPLEMENTATION
     Route: 065
     Dates: end: 20110422
  7. METFORMIN HCL [Interacting]
     Indication: DIABETES MELLITUS
     Route: 048
  8. TRICOR [Interacting]
     Route: 048

REACTIONS (5)
  - ACTIVITIES OF DAILY LIVING IMPAIRED [None]
  - OEDEMA PERIPHERAL [None]
  - MYALGIA [None]
  - DRUG INTERACTION [None]
  - DRUG INEFFECTIVE [None]
